FAERS Safety Report 10451736 (Version 4)
Quarter: 2015Q2

REPORT INFORMATION
  Report Type: Report from Study
  Country: CA (occurrence: CA)
  Receive Date: 20140915
  Receipt Date: 20150504
  Transmission Date: 20150821
  Serious: Yes (Other)
  Sender: FDA-Public Use
  Company Number: CA-ROCHE-1450627

PATIENT
  Age: 41 Year
  Sex: Female
  Weight: 97.7 kg

DRUGS (12)
  1. TYLENOL [Concomitant]
     Active Substance: ACETAMINOPHEN
     Route: 048
     Dates: start: 20100914
  2. METHYLPREDNISOLONE. [Concomitant]
     Active Substance: METHYLPREDNISOLONE
     Route: 042
     Dates: start: 20100914
  3. PREDNISONE. [Concomitant]
     Active Substance: PREDNISONE
     Route: 048
  4. RITUXAN [Suspect]
     Active Substance: RITUXIMAB
     Indication: RHEUMATOID ARTHRITIS
     Dosage: PREVIOUS RITUXAN INFUSION: 26-MAR-2013, 26/NOV/2014
     Route: 042
     Dates: start: 20100914
  5. METHOTREXATE [Suspect]
     Active Substance: METHOTREXATE
     Indication: PRODUCT USED FOR UNKNOWN INDICATION
     Route: 065
  6. BENADRYL [Concomitant]
     Active Substance: DIPHENHYDRAMINE HYDROCHLORIDE
     Route: 048
     Dates: start: 20100914
  7. VOLTAREN [Concomitant]
     Active Substance: DICLOFENAC SODIUM
     Route: 048
  8. BENADRYL [Concomitant]
     Active Substance: DIPHENHYDRAMINE HYDROCHLORIDE
     Route: 048
  9. SYNTHROID [Concomitant]
     Active Substance: LEVOTHYROXINE SODIUM
     Route: 048
  10. PANTOLOC [Concomitant]
     Active Substance: PANTOPRAZOLE SODIUM
     Route: 048
  11. FOLIC ACID. [Concomitant]
     Active Substance: FOLIC ACID
  12. CARBOCAL [Concomitant]
     Active Substance: CALCIUM CARBONATE
     Dosage: 1 CO
     Route: 048

REACTIONS (7)
  - Infusion related reaction [Recovering/Resolving]
  - Throat irritation [Not Recovered/Not Resolved]
  - Rheumatoid arthritis [Unknown]
  - Chest discomfort [Not Recovered/Not Resolved]
  - Gastric disorder [Unknown]
  - Weight increased [Unknown]
  - Nasopharyngitis [Not Recovered/Not Resolved]

NARRATIVE: CASE EVENT DATE: 201404
